FAERS Safety Report 14753279 (Version 7)
Quarter: 2020Q4

REPORT INFORMATION
  Report Type: Spontaneous
  Country: DE (occurrence: DE)
  Receive Date: 20180412
  Receipt Date: 20201210
  Transmission Date: 20210113
  Serious: Yes (Other)
  Sender: FDA-Public Use
  Company Number: PHHY2017DE202178

PATIENT
  Age: 72 Year
  Sex: Female

DRUGS (25)
  1. ROACTEMRA [Interacting]
     Active Substance: TOCILIZUMAB
     Dosage: 162 MG, Q3W
     Route: 058
     Dates: start: 201912
  2. FALITHROM [Interacting]
     Active Substance: PHENPROCOUMON
     Indication: COAGULOPATHY
     Dosage: 4.5 MG (1.5-4.5 MG)
     Route: 065
  3. DEKRISTOL [Concomitant]
     Active Substance: CHOLECALCIFEROL
     Indication: PRODUCT USED FOR UNKNOWN INDICATION
     Dosage: 20000 IU, QW
     Route: 065
  4. RAMIPRIL. [Concomitant]
     Active Substance: RAMIPRIL
     Dosage: 5 MG, QD (0.5-0-0.5)
     Route: 065
  5. AMLODIPIN [Concomitant]
     Active Substance: AMLODIPINE BESYLATE
     Indication: PRODUCT USED FOR UNKNOWN INDICATION
     Dosage: 5 MG, UNK
     Route: 065
  6. RAMIPRIL. [Concomitant]
     Active Substance: RAMIPRIL
     Indication: PRODUCT USED FOR UNKNOWN INDICATION
     Dosage: 10 MG (0.5-0-0.5)
     Route: 065
  7. TORASEMIDE [Concomitant]
     Active Substance: TORSEMIDE
     Indication: PRODUCT USED FOR UNKNOWN INDICATION
     Route: 065
  8. METHOTREXATE. [Suspect]
     Active Substance: METHOTREXATE
     Indication: PRODUCT USED FOR UNKNOWN INDICATION
     Dosage: UNK
     Route: 065
     Dates: end: 20170914
  9. FALITHROM [Interacting]
     Active Substance: PHENPROCOUMON
     Dosage: 1.5 DF, QD (BASED ON VALUE 0.5 - 1.5 TABLETS DAILY)
     Route: 065
  10. ROACTEMRA [Interacting]
     Active Substance: TOCILIZUMAB
     Indication: RHEUMATOID ARTHRITIS
     Dosage: 162 MG, QW
     Route: 058
     Dates: start: 20140401
  11. ROACTEMRA [Interacting]
     Active Substance: TOCILIZUMAB
     Dosage: 162 MG, QW
     Route: 058
  12. METOPROLOL. [Concomitant]
     Active Substance: METOPROLOL
     Indication: PRODUCT USED FOR UNKNOWN INDICATION
     Dosage: 19 MG, UNK
     Route: 065
  13. DORZOLAMIDE [Concomitant]
     Active Substance: DORZOLAMIDE
     Indication: PRODUCT USED FOR UNKNOWN INDICATION
     Route: 065
  14. METFORMIN [Concomitant]
     Active Substance: METFORMIN HYDROCHLORIDE
     Dosage: 500 MG (EVERY 0.5 DAY)
     Route: 065
  15. ROACTEMRA [Interacting]
     Active Substance: TOCILIZUMAB
     Dosage: 162 MG, Q2W
     Route: 058
     Dates: start: 20190225
  16. PREDNISOLON [Concomitant]
     Active Substance: PREDNISOLONE
     Indication: PRODUCT USED FOR UNKNOWN INDICATION
     Dosage: 5 MG, UNK
     Route: 065
  17. DEKRISTOL [Concomitant]
     Active Substance: CHOLECALCIFEROL
     Dosage: 20000 IU, Q2W
     Route: 065
  18. DIGITOXIN [Concomitant]
     Active Substance: DIGITOXIN
     Indication: ATRIAL FIBRILLATION
     Dosage: 0.07 MG, QD
     Route: 065
  19. FOLIC ACID. [Concomitant]
     Active Substance: FOLIC ACID
     Indication: PRODUCT USED FOR UNKNOWN INDICATION
     Dosage: 5 MG, UNK
     Route: 065
  20. METFORMIN [Concomitant]
     Active Substance: METFORMIN HYDROCHLORIDE
     Indication: DIABETES MELLITUS
     Dosage: 1000 MG, QD (MORNING)
     Route: 065
  21. METFORMIN [Concomitant]
     Active Substance: METFORMIN HYDROCHLORIDE
     Dosage: 250 MG, QD (MORNING)
     Route: 065
  22. BIOTIN [Concomitant]
     Active Substance: BIOTIN
     Indication: PRODUCT USED FOR UNKNOWN INDICATION
     Dosage: UNK
     Route: 065
     Dates: start: 20180301
  23. ROACTEMRA [Interacting]
     Active Substance: TOCILIZUMAB
     Dosage: 162 MG, UNK (EVERY 10 DAYS)
     Route: 058
     Dates: start: 201711
  24. ROACTEMRA [Interacting]
     Active Substance: TOCILIZUMAB
     Dosage: 162 MG, Q2W
     Route: 058
     Dates: start: 20180509, end: 20190211
  25. METOPROLOL. [Concomitant]
     Active Substance: METOPROLOL
     Dosage: 9.5 MG
     Route: 065

REACTIONS (30)
  - Right ventricular failure [Not Recovered/Not Resolved]
  - Intra-abdominal fluid collection [Not Recovered/Not Resolved]
  - Alopecia [Not Recovered/Not Resolved]
  - Visual acuity reduced [Not Recovered/Not Resolved]
  - Saliva discolouration [Recovered/Resolved]
  - Drug interaction [Unknown]
  - Peripheral swelling [Not Recovered/Not Resolved]
  - Pain in extremity [Recovered/Resolved]
  - Nasopharyngitis [Recovered/Resolved]
  - Congestive hepatopathy [Unknown]
  - Skin cancer [Recovered/Resolved]
  - Sinusitis [Recovered/Resolved]
  - Nasal discharge discolouration [Not Recovered/Not Resolved]
  - Platelet count decreased [Not Recovered/Not Resolved]
  - Headache [Not Recovered/Not Resolved]
  - Inflammation [Recovered/Resolved]
  - Hyperkeratosis [Not Recovered/Not Resolved]
  - Diarrhoea [Recovered/Resolved]
  - Rhinitis [Recovered/Resolved]
  - Hair texture abnormal [Not Recovered/Not Resolved]
  - Neck mass [Not Recovered/Not Resolved]
  - Oral herpes [Not Recovered/Not Resolved]
  - Aortic arteriosclerosis [Not Recovered/Not Resolved]
  - Dry mouth [Not Recovered/Not Resolved]
  - Hot flush [Not Recovered/Not Resolved]
  - Nasopharyngitis [Recovered/Resolved]
  - International normalised ratio decreased [Not Recovered/Not Resolved]
  - Hepatomegaly [Recovering/Resolving]
  - Tinnitus [Not Recovered/Not Resolved]
  - Dizziness [Not Recovered/Not Resolved]

NARRATIVE: CASE EVENT DATE: 20170401
